FAERS Safety Report 9228038 (Version 1)
Quarter: 2013Q2

REPORT INFORMATION
  Report Type: Spontaneous
  Country: US (occurrence: US)
  Receive Date: 20130412
  Receipt Date: 20130412
  Transmission Date: 20140414
  Serious: No
  Sender: FDA-Public Use
  Company Number: US-GLAXOSMITHKLINE-A1009020A

PATIENT
  Age: 76 Year
  Sex: Male

DRUGS (12)
  1. JALYN [Suspect]
     Indication: URINARY INCONTINENCE
     Dosage: 1CAP PER DAY
     Route: 048
     Dates: start: 20130117
  2. METFORMIN [Concomitant]
  3. GLYBURIDE [Concomitant]
  4. LISINOPRIL [Concomitant]
  5. ZOLPIDEM [Concomitant]
  6. CLONAZEPAM [Concomitant]
  7. WELLBUTRIN [Concomitant]
  8. SIMVASTATIN [Concomitant]
  9. ADDERALL [Concomitant]
  10. LYRICA [Concomitant]
  11. HORIZANT [Concomitant]
  12. JANUVIA [Concomitant]

REACTIONS (2)
  - Peripheral coldness [Unknown]
  - Pain in extremity [Unknown]
